FAERS Safety Report 8598594-8 (Version None)
Quarter: 2012Q3

REPORT INFORMATION
  Report Type: 
  Country: None (occurrence: None)
  Receive Date: 20120816
  Receipt Date: 20090821
  Transmission Date: 20120928
  Serious: Yes (Death)
  Sender: FDA-Public Use
  Company Number: ZA-ROCHE-1098450

PATIENT
  Sex: Female

DRUGS (3)
  1. VENOFER [Concomitant]
  2. MIRCERA [Suspect]
     Indication: PRODUCT USED FOR UNKNOWN INDICATION
  3. NEORECORMON [Suspect]
     Indication: PRODUCT USED FOR UNKNOWN INDICATION
     Route: 058
     Dates: start: 20080301

REACTIONS (1)
  - DISEASE PROGRESSION [None]
